FAERS Safety Report 14074783 (Version 1)
Quarter: 2017Q4

REPORT INFORMATION
  Report Type: Spontaneous
  Country: US (occurrence: US)
  Receive Date: 20171010
  Receipt Date: 20171010
  Transmission Date: 20180321
  Serious: No
  Sender: FDA-Public Use
  Company Number: US-BAYER-2017-192741

PATIENT
  Age: 41 Year
  Sex: Male
  Weight: 94.97 kg

DRUGS (1)
  1. ALEVE [Suspect]
     Active Substance: NAPROXEN SODIUM
     Indication: PAIN
     Dosage: 2 DF, UNK
     Route: 048
     Dates: start: 20171006, end: 20171006

REACTIONS (4)
  - Dysgeusia [Unknown]
  - Poor quality drug administered [None]
  - Wrong technique in product usage process [Unknown]
  - Product colour issue [Unknown]

NARRATIVE: CASE EVENT DATE: 20171006
